FAERS Safety Report 15497384 (Version 2)
Quarter: 2018Q4

REPORT INFORMATION
  Report Type: Spontaneous
  Country: US (occurrence: US)
  Receive Date: 20181015
  Receipt Date: 20181109
  Transmission Date: 20190205
  Serious: No
  Sender: FDA-Public Use
  Company Number: US-PFIZER INC-2018413744

PATIENT
  Age: 67 Year
  Sex: Female
  Weight: 94.35 kg

DRUGS (3)
  1. GABAPENTIN. [Suspect]
     Active Substance: GABAPENTIN
     Indication: DIABETIC NEUROPATHY
     Dosage: 600 MG, 4X/DAY (2 CAPSULES 4 TIMES PER DAY)
  2. LORAZEPAM. [Concomitant]
     Active Substance: LORAZEPAM
     Indication: DEPRESSION
     Dosage: 0.5 MG, 3X/DAY
     Dates: start: 201708
  3. FLUOXETINE AN [Concomitant]
     Indication: DEPRESSION
     Dosage: 10 MG, DAILY
     Dates: start: 201708

REACTIONS (1)
  - Drug ineffective for unapproved indication [Not Recovered/Not Resolved]

NARRATIVE: CASE EVENT DATE: 2016
